FAERS Safety Report 5761209-8 (Version None)
Quarter: 2008Q2

REPORT INFORMATION
  Report Type: 
  Country: None (occurrence: None)
  Receive Date: 20080606
  Receipt Date: 20080526
  Transmission Date: 20081010
  Serious: Yes (Other)
  Sender: FDA-Public Use
  Company Number: PHBS2008DE04644

PATIENT
  Age: 8 Year
  Sex: Male

DRUGS (5)
  1. CYCLOSPORINE [Suspect]
     Indication: LIVER TRANSPLANT
  2. AZATHIOPRINE [Suspect]
     Indication: LIVER TRANSPLANT
  3. METHYLPREDNISOLONE [Suspect]
     Indication: LIVER TRANSPLANT
  4. HB GLOBULIN [Concomitant]
     Indication: PROPHYLAXIS
     Route: 042
  5. CHEMOTHERAPEUTICS NOS [Concomitant]
     Indication: HODGKIN'S DISEASE

REACTIONS (17)
  - ABDOMINAL PAIN [None]
  - COUGH [None]
  - DERMATITIS BULLOUS [None]
  - DIARRHOEA [None]
  - EPSTEIN-BARR VIRUS INFECTION [None]
  - FEBRILE NEUTROPENIA [None]
  - HEPATIC LESION [None]
  - HODGKIN'S DISEASE [None]
  - LOBAR PNEUMONIA [None]
  - LYMPHADENOPATHY [None]
  - MUCOSAL INFLAMMATION [None]
  - OROPHARYNGEAL CANDIDIASIS [None]
  - PYREXIA [None]
  - RENAL FAILURE ACUTE [None]
  - SKIN EXFOLIATION [None]
  - SPLENOMEGALY [None]
  - VOMITING [None]
